FAERS Safety Report 24023053 (Version 4)
Quarter: 2024Q3

REPORT INFORMATION
  Report Type: Report from Study
  Country: CN (occurrence: CN)
  Receive Date: 20240627
  Receipt Date: 20240710
  Transmission Date: 20241016
  Serious: No
  Sender: ROCHE
  Company Number: CN-ROCHE-3277963

PATIENT
  Age: 71 Year
  Sex: Female
  Weight: 51.0 kg

DRUGS (26)
  1. ALECTINIB [Suspect]
     Active Substance: ALECTINIB
     Indication: Lung cancer metastatic
     Route: 048
     Dates: start: 20211217
  2. CEFDINIR [Concomitant]
     Active Substance: CEFDINIR
     Indication: Urinary tract infection
     Route: 048
     Dates: start: 20211220
  3. URSODIOL [Concomitant]
     Active Substance: URSODIOL
     Indication: Blood bilirubin increased
     Route: 048
     Dates: start: 20220407
  4. URSODIOL [Concomitant]
     Active Substance: URSODIOL
     Route: 048
     Dates: start: 20221024
  5. URSODIOL [Concomitant]
     Active Substance: URSODIOL
     Route: 048
     Dates: start: 20230315
  6. ZOLEDRONIC ACID [Concomitant]
     Active Substance: ZOLEDRONIC ACID
     Indication: Metastases to bone
     Route: 050
     Dates: start: 20221022, end: 20221022
  7. ZOLEDRONIC ACID [Concomitant]
     Active Substance: ZOLEDRONIC ACID
     Route: 050
     Dates: start: 20230111, end: 20230312
  8. VITAMIN C [Concomitant]
     Active Substance: ASCORBIC ACID
     Route: 050
     Dates: start: 20221120, end: 20221130
  9. VITAMIN C [Concomitant]
     Active Substance: ASCORBIC ACID
     Route: 050
     Dates: start: 20221120, end: 20221123
  10. VITAMIN C [Concomitant]
     Active Substance: ASCORBIC ACID
     Route: 050
     Dates: start: 20230111, end: 20230111
  11. VITAMIN C [Concomitant]
     Active Substance: ASCORBIC ACID
     Route: 050
     Dates: start: 20230211, end: 20230213
  12. VITAMIN C [Concomitant]
     Active Substance: ASCORBIC ACID
     Route: 050
     Dates: start: 20230311, end: 20230311
  13. VITAMIN B6 [Concomitant]
     Active Substance: PYRIDOXINE HYDROCHLORIDE
     Route: 050
     Dates: start: 20221120, end: 20221123
  14. VITAMIN B6 [Concomitant]
     Active Substance: PYRIDOXINE HYDROCHLORIDE
     Route: 050
     Dates: start: 20230111, end: 20230111
  15. VITAMIN B6 [Concomitant]
     Active Substance: PYRIDOXINE HYDROCHLORIDE
     Route: 050
     Dates: start: 20230211, end: 20230213
  16. VITAMIN B6 [Concomitant]
     Active Substance: PYRIDOXINE HYDROCHLORIDE
     Route: 050
     Dates: start: 20230311, end: 20230311
  17. ZOLEDRONIC ACID [Concomitant]
     Active Substance: ZOLEDRONIC ACID
     Route: 050
     Dates: start: 20230111, end: 20230112
  18. KUSHEN [Concomitant]
     Route: 050
     Dates: start: 20230110, end: 20230112
  19. KUSHEN [Concomitant]
     Route: 050
     Dates: start: 20230211, end: 20230211
  20. KUSHEN [Concomitant]
     Route: 050
     Dates: start: 20230213, end: 20230213
  21. KUSHEN [Concomitant]
     Route: 050
     Dates: start: 20230311, end: 20230311
  22. KUSHEN [Concomitant]
     Route: 050
     Dates: start: 20230313, end: 20230313
  23. DIETARY SUPPLEMENT\OPHIOCORDYCEPS SINENSIS [Concomitant]
     Active Substance: DIETARY SUPPLEMENT\OPHIOCORDYCEPS SINENSIS
     Route: 048
     Dates: start: 20230111
  24. MONTMORILLONITE [Concomitant]
     Active Substance: MONTMORILLONITE
     Indication: Diarrhoea
     Route: 048
     Dates: start: 20230112, end: 20230113
  25. COMPOUND YIGANLING CAPSULE [Concomitant]
     Route: 048
     Dates: start: 20211220
  26. BLOOD TREASURE MIXTURE (UNK INGREDIENTS) [Concomitant]
     Route: 048
     Dates: start: 20230315

REACTIONS (1)
  - Anaemia [Not Recovered/Not Resolved]

NARRATIVE: CASE EVENT DATE: 20221121
